FAERS Safety Report 10237707 (Version 1)
Quarter: 2014Q2

REPORT INFORMATION
  Report Type: Spontaneous
  Country: JP (occurrence: JP)
  Receive Date: 20140616
  Receipt Date: 20140616
  Transmission Date: 20141212
  Serious: Yes (Death, Hospitalization)
  Sender: FDA-Public Use
  Company Number: JP-ROCHE-1414020

PATIENT
  Age: 72 Year
  Sex: Male
  Weight: 52 kg

DRUGS (9)
  1. PEGASYS [Suspect]
     Indication: CHRONIC HEPATITIS C
     Route: 058
     Dates: start: 20140314
  2. COPEGUS [Suspect]
     Indication: CHRONIC HEPATITIS C
     Route: 048
     Dates: start: 20140314
  3. SOVRIAD [Suspect]
     Indication: CHRONIC HEPATITIS C
     Route: 048
     Dates: start: 20140314, end: 20140418
  4. XARELTO [Concomitant]
     Route: 065
  5. SUNRHYTHM [Concomitant]
  6. MICOMBI COMBINATION [Concomitant]
  7. NORVASC [Concomitant]
  8. LOXONIN [Concomitant]
  9. MUCOSTA [Concomitant]

REACTIONS (10)
  - Multi-organ failure [Fatal]
  - Sepsis [Fatal]
  - Necrotising fasciitis [Not Recovered/Not Resolved]
  - Severe invasive streptococcal infection [Not Recovered/Not Resolved]
  - Altered state of consciousness [Unknown]
  - Disseminated intravascular coagulation [Unknown]
  - Aspartate aminotransferase increased [Unknown]
  - Alanine aminotransferase increased [Unknown]
  - Amylase increased [Unknown]
  - Hyperbilirubinaemia [Unknown]
